FAERS Safety Report 24899187 (Version 2)
Quarter: 2025Q3

REPORT INFORMATION
  Report Type: Spontaneous
  Country: US (occurrence: US)
  Receive Date: 20250129
  Receipt Date: 20250819
  Transmission Date: 20251020
  Serious: Yes (Other)
  Sender: RANBAXY
  Company Number: US-SUN PHARMACEUTICAL INDUSTRIES LTD-2025R1-491161

PATIENT
  Age: 56 Year
  Sex: Female

DRUGS (2)
  1. BACTRIM [Suspect]
     Active Substance: SULFAMETHOXAZOLE\TRIMETHOPRIM
     Indication: Mycobacterium fortuitum infection
     Dosage: 1 TABLET, BID
     Route: 048
     Dates: start: 20240905, end: 20241204
  2. LEVAQUIN [Concomitant]
     Active Substance: LEVOFLOXACIN
     Indication: Mycobacterium fortuitum infection
     Dosage: 750 MILLIGRAM, DAILY
     Route: 048
     Dates: start: 20240905, end: 20241204

REACTIONS (2)
  - Cytopenia [Unknown]
  - Drug intolerance [Unknown]
